FAERS Safety Report 25644608 (Version 1)
Quarter: 2025Q3

REPORT INFORMATION
  Report Type: Spontaneous
  Country: JP (occurrence: JP)
  Receive Date: 20250805
  Receipt Date: 20250805
  Transmission Date: 20251021
  Serious: Yes (Hospitalization, Other)
  Sender: PFIZER
  Company Number: JP-PFIZER INC-PV202500091928

PATIENT
  Age: 66 Year
  Sex: Female
  Weight: 57 kg

DRUGS (6)
  1. SULFASALAZINE [Suspect]
     Active Substance: SULFASALAZINE
     Indication: Rheumatoid arthritis
     Dates: start: 20250614
  2. ATORVASTATIN ME [Concomitant]
     Route: 048
  3. BENIDIPINE HYDROCHLORIDE [Concomitant]
     Active Substance: BENIDIPINE HYDROCHLORIDE
     Route: 048
  4. DILTIAZEM HYDROCHLORIDE SUSTAINED RELEASE CAPSULES (II) [Concomitant]
     Route: 048
  5. NICORANDIL TOWA [Concomitant]
     Route: 048
  6. LINZESS [Concomitant]
     Active Substance: LINACLOTIDE
     Route: 048

REACTIONS (9)
  - Drug reaction with eosinophilia and systemic symptoms [Not Recovered/Not Resolved]
  - Erythema [Not Recovered/Not Resolved]
  - Hepatic enzyme increased [Unknown]
  - Disease recurrence [Recovering/Resolving]
  - Pyrexia [Unknown]
  - Back pain [Unknown]
  - Oropharyngeal pain [Unknown]
  - Viral infection [Unknown]
  - Collagen disorder [Unknown]

NARRATIVE: CASE EVENT DATE: 20250701
